FAERS Safety Report 14278329 (Version 1)
Quarter: 2017Q4

REPORT INFORMATION
  Report Type: Spontaneous
  Country: GB (occurrence: GB)
  Receive Date: 20171212
  Receipt Date: 20171212
  Transmission Date: 20180321
  Serious: Yes (Other)
  Sender: FDA-Public Use
  Company Number: GB-ASTRAZENECA-2017SF22918

PATIENT
  Age: 60 Year
  Sex: Female

DRUGS (3)
  1. SYMBICORT [Suspect]
     Active Substance: BUDESONIDE\FORMOTEROL FUMARATE DIHYDRATE
     Route: 055
  2. VENTOLIN [Interacting]
     Active Substance: ALBUTEROL SULFATE
     Indication: DYSPNOEA
     Dosage: 100 MICROGRAMS PER INHALATION
     Route: 055
  3. CLENIL MODULITE [Concomitant]
     Active Substance: BECLOMETHASONE DIPROPIONATE
     Route: 055

REACTIONS (2)
  - Drug ineffective [Recovered/Resolved]
  - Inhibitory drug interaction [Unknown]

NARRATIVE: CASE EVENT DATE: 20170101
